FAERS Safety Report 17495069 (Version 1)
Quarter: 2020Q1

REPORT INFORMATION
  Report Type: Spontaneous
  Country: US (occurrence: US)
  Receive Date: 20200221
  Receipt Date: 20200221
  Transmission Date: 20200409
  Serious: Yes (Hospitalization)
  Sender: FDA-Public Use
  Company Number: None

PATIENT
  Sex: Male
  Weight: 67.9 kg

DRUGS (1)
  1. ERBITUX [Suspect]
     Active Substance: CETUXIMAB
     Dates: start: 20200109, end: 20200205

REACTIONS (4)
  - Atrial fibrillation [None]
  - Orthostatic hypotension [None]
  - Hypophagia [None]
  - Dizziness [None]

NARRATIVE: CASE EVENT DATE: 20200207
